FAERS Safety Report 7491195-4 (Version None)
Quarter: 2011Q2

REPORT INFORMATION
  Report Type: 
  Country: None (occurrence: None)
  Receive Date: 20110518
  Receipt Date: 20110518
  Transmission Date: 20111010
  Serious: Yes (Hospitalization)
  Sender: FDA-Public Use
  Company Number: None

PATIENT
  Age: 90 Year
  Sex: Female
  Weight: 46 kg

DRUGS (4)
  1. BACTRIM DS [Suspect]
     Indication: URINARY TRACT INFECTION
     Dosage: 1 BID PO FOR PAST WEEK
     Route: 048
  2. XALATAN [Concomitant]
  3. FOSAMAX [Concomitant]
  4. VICODIN [Concomitant]

REACTIONS (1)
  - RENAL FAILURE ACUTE [None]
